FAERS Safety Report 6832857-9 (Version None)
Quarter: 2010Q3

REPORT INFORMATION
  Report Type: 
  Country: None (occurrence: None)
  Receive Date: 20100712
  Receipt Date: 20070316
  Transmission Date: 20110219
  Serious: No
  Sender: FDA-Public Use
  Company Number: US-PFIZER INC-2007022237

PATIENT
  Sex: Female
  Weight: 63.5 kg

DRUGS (4)
  1. CHANTIX [Suspect]
     Indication: SMOKING CESSATION THERAPY
     Dates: start: 20070107, end: 20070101
  2. INSULIN [Concomitant]
  3. CHOLESTEROL [Concomitant]
     Indication: BLOOD CHOLESTEROL INCREASED
  4. VITAMINS [Concomitant]

REACTIONS (4)
  - INSOMNIA [None]
  - NAUSEA [None]
  - NOCTURIA [None]
  - VOMITING [None]
